FAERS Safety Report 14846101 (Version 1)
Quarter: 2018Q2

REPORT INFORMATION
  Report Type: Spontaneous
  Country: US (occurrence: US)
  Receive Date: 20180419
  Receipt Date: 20180419
  Transmission Date: 20180711
  Serious: Yes (Other)
  Sender: FDA-Public Use
  Company Number: None

PATIENT
  Age: 28 Year
  Sex: Male
  Weight: 69.75 kg

DRUGS (4)
  1. FINASTERIDE. [Suspect]
     Active Substance: FINASTERIDE
     Indication: ALOPECIA
     Route: 048
  2. VYVANSE [Concomitant]
     Active Substance: LISDEXAMFETAMINE DIMESYLATE
     Dates: start: 20180117
  3. XANAX [Concomitant]
     Active Substance: ALPRAZOLAM
     Dates: start: 20130101
  4. ADDERALL [Concomitant]
     Active Substance: AMPHETAMINE ASPARTATE\AMPHETAMINE SULFATE\DEXTROAMPHETAMINE SACCHARATE\DEXTROAMPHETAMINE SULFATE
     Dates: start: 20080101

REACTIONS (5)
  - Depression [None]
  - Libido decreased [None]
  - Anxiety [None]
  - Confusional state [None]
  - Insomnia [None]

NARRATIVE: CASE EVENT DATE: 20180404
